FAERS Safety Report 6020961-7 (Version None)
Quarter: 2008Q4

REPORT INFORMATION
  Report Type: 
  Country: None (occurrence: None)
  Receive Date: 20081229
  Receipt Date: 20081222
  Transmission Date: 20090506
  Serious: Yes (Hospitalization, Other)
  Sender: FDA-Public Use
  Company Number: JP-BAYER-200812242BYL

PATIENT
  Age: 61 Year
  Sex: Female
  Weight: 52 kg

DRUGS (6)
  1. NEXAVAR [Suspect]
     Indication: RENAL CELL CARCINOMA STAGE IV
     Dosage: UNIT DOSE: 200 MG
     Route: 048
     Dates: start: 20080905, end: 20080917
  2. OXYCONTIN [Concomitant]
     Route: 048
     Dates: start: 20080903
  3. GASTER D [Concomitant]
     Indication: NAUSEA
     Route: 048
     Dates: start: 20080904, end: 20080906
  4. PURSENNID [Concomitant]
     Dosage: TOTAL DAILY DOSE: 12 MG
     Route: 048
     Dates: start: 20080905, end: 20081007
  5. MAGLAX [Concomitant]
     Dosage: TOTAL DAILY DOSE: 990 MG  UNIT DOSE: 330 MG
     Route: 048
     Dates: start: 20080922
  6. LAXOBERON [Concomitant]
     Indication: CONSTIPATION
     Dosage: TOTAL DAILY DOSE: 10 ML
     Route: 048
     Dates: start: 20080924

REACTIONS (3)
  - ERYTHEMA MULTIFORME [None]
  - STEVENS-JOHNSON SYNDROME [None]
  - STOMATITIS [None]
